FAERS Safety Report 14519848 (Version 1)
Quarter: 2018Q1

REPORT INFORMATION
  Report Type: Spontaneous
  Country: US (occurrence: US)
  Receive Date: 20180212
  Receipt Date: 20180212
  Transmission Date: 20180509
  Serious: Yes (Hospitalization, Disabling)
  Sender: FDA-Public Use
  Company Number: None

PATIENT
  Age: 46 Year
  Sex: Female
  Weight: 104.33 kg

DRUGS (4)
  1. METROMIN [Concomitant]
  2. XARELTO [Concomitant]
     Active Substance: RIVAROXABAN
  3. AMINOPHEN/COD # 3 [Concomitant]
  4. DEPO-PROVERA [Suspect]
     Active Substance: MEDROXYPROGESTERONE ACETATE
     Indication: CONTRACEPTION
     Dates: start: 20170315, end: 20171209

REACTIONS (4)
  - Pulmonary fibrosis [None]
  - Pulmonary thrombosis [None]
  - Dyspnoea [None]
  - Pain [None]

NARRATIVE: CASE EVENT DATE: 20171208
